FAERS Safety Report 4466021-8 (Version None)
Quarter: 2004Q3

REPORT INFORMATION
  Report Type: 
  Country: None (occurrence: None)
  Receive Date: 20040930
  Receipt Date: 20040921
  Transmission Date: 20050211
  Serious: Yes (Hospitalization)
  Sender: FDA-Public Use
  Company Number: 2004234532JP

PATIENT

DRUGS (2)
  1. SULFASALAZINE [Suspect]
     Dosage: ORAL
     Route: 048
  2. THIATON (TIQUIZIUM BROMIDE) [Suspect]

REACTIONS (2)
  - DRUG EFFECT DECREASED [None]
  - MEGACOLON ACQUIRED [None]
